FAERS Safety Report 7029541-8 (Version None)
Quarter: 2010Q3

REPORT INFORMATION
  Report Type: 
  Country: None (occurrence: None)
  Receive Date: 20100930
  Receipt Date: 20100916
  Transmission Date: 20110219
  Serious: Yes (Hospitalization)
  Sender: FDA-Public Use
  Company Number: 017654

PATIENT
  Sex: Female
  Weight: 50.3 kg

DRUGS (1)
  1. CIMZIA [Suspect]
     Indication: CROHN'S DISEASE
     Dosage: (400 MG 1X/MONTH, TWO SHOTS EVERY MONTH SUBCUTANEOUS)
     Route: 058
     Dates: start: 20091201, end: 20100201

REACTIONS (5)
  - CONDITION AGGRAVATED [None]
  - CROHN'S DISEASE [None]
  - GASTROINTESTINAL ANASTOMOTIC LEAK [None]
  - PYREXIA [None]
  - WEIGHT DECREASED [None]
